FAERS Safety Report 10166529 (Version 1)
Quarter: 2014Q2

REPORT INFORMATION
  Report Type: Spontaneous
  Country: US (occurrence: None)
  Receive Date: 20140509
  Receipt Date: 20140509
  Transmission Date: 20141212
  Serious: Yes (Life-Threatening, Hospitalization)
  Sender: FDA-Public Use
  Company Number: None

PATIENT
  Age: 55 Year
  Sex: Female

DRUGS (1)
  1. LINZESS [Suspect]
     Indication: IRRITABLE BOWEL SYNDROME
     Dosage: 290 MCG, 1 A.M., PILL?FIRST PILL 3-11-2014, LAST PILL 3-27-2014
     Dates: start: 20140311, end: 20140327

REACTIONS (3)
  - Palpitations [None]
  - Insomnia [None]
  - Chest discomfort [None]
